FAERS Safety Report 16408945 (Version 6)
Quarter: 2019Q3

REPORT INFORMATION
  Report Type: Spontaneous
  Country: IE (occurrence: IE)
  Receive Date: 20190610
  Receipt Date: 20190924
  Transmission Date: 20191004
  Serious: Yes (Death, Hospitalization, Other)
  Sender: FDA-Public Use
  Company Number: IE-MYLANLABS-2019M1054225

PATIENT
  Sex: Female

DRUGS (5)
  1. METHOTREXATE SODIUM. [Interacting]
     Active Substance: METHOTREXATE SODIUM
     Dosage: 10 MILLIGRAM, QD, 10 MG, 1X/DAY
     Route: 048
     Dates: start: 20000407
  2. IBUPROFEN. [Suspect]
     Active Substance: IBUPROFEN
     Indication: PRODUCT USED FOR UNKNOWN INDICATION
     Dosage: UNK
     Dates: end: 20000421
  3. METHOTREXATE SODIUM. [Interacting]
     Active Substance: METHOTREXATE SODIUM
     Indication: RHEUMATOID ARTHRITIS
     Dosage: 10 MILLIGRAM, QW (10 MG, WEEKLY)
     Route: 048
     Dates: start: 199701
  4. METHOTREXATE SODIUM. [Interacting]
     Active Substance: METHOTREXATE SODIUM
     Dosage: 2.5 MILLIGRAM (2.5 DF, UNK (DURING HER 8 DAY ADMISSION)
     Route: 048
     Dates: start: 200001
  5. METHOTREXATE SODIUM. [Interacting]
     Active Substance: METHOTREXATE SODIUM
     Dosage: 17.5 MILLIGRAM, QW
     Route: 048
     Dates: start: 199701

REACTIONS (15)
  - Pancytopenia [Fatal]
  - Gastrointestinal haemorrhage [Fatal]
  - Product prescribing error [Fatal]
  - Labelled drug-drug interaction medication error [Fatal]
  - Inappropriate schedule of product administration [Fatal]
  - Arthralgia [Unknown]
  - Product dispensing error [Fatal]
  - Condition aggravated [Unknown]
  - Overdose [Fatal]
  - Intercepted product administration error [Fatal]
  - Phlebitis [Unknown]
  - Inflammation [Unknown]
  - Rash [Unknown]
  - Mucosal inflammation [Unknown]
  - Toxicity to various agents [Fatal]

NARRATIVE: CASE EVENT DATE: 20000401
